FAERS Safety Report 5392053-1 (Version None)
Quarter: 2007Q3

REPORT INFORMATION
  Report Type: 
  Country: None (occurrence: None)
  Receive Date: 20070720
  Receipt Date: 20070711
  Transmission Date: 20080115
  Serious: Yes (Hospitalization)
  Sender: FDA-Public Use
  Company Number: JP-NOVOPROD-249423

PATIENT
  Age: 70 Year
  Sex: Male
  Weight: 44 kg

DRUGS (11)
  1. NOVOLIN N [Suspect]
     Dosage: 24 IU, QD
     Route: 058
     Dates: start: 20050204, end: 20050618
  2. HUMACART R [Suspect]
     Indication: INSULIN-REQUIRING TYPE II DIABETES MELLITUS
     Dosage: 9 IU, QD
     Route: 058
     Dates: start: 20050109, end: 20050203
  3. NOVOLIN N [Concomitant]
     Indication: INSULIN-REQUIRING TYPE II DIABETES MELLITUS
     Dosage: 16-24 IU QD
     Route: 058
     Dates: start: 20050131, end: 20050725
  4. NOVOLIN 30R CHU [Concomitant]
     Indication: INSULIN-REQUIRING TYPE II DIABETES MELLITUS
     Dosage: 16-24 IU, QD
     Route: 058
     Dates: start: 20050124, end: 20050621
  5. NOVOLIN R [Concomitant]
     Indication: INSULIN-REQUIRING TYPE II DIABETES MELLITUS
     Dosage: 16-22 IU
     Route: 058
     Dates: start: 20050630, end: 20050718
  6. NOVORAPID CHU [Concomitant]
     Indication: INSULIN-REQUIRING TYPE II DIABETES MELLITUS
     Dosage: 14-50 IU
     Route: 058
     Dates: start: 20050621, end: 20050630
  7. HALCION [Concomitant]
     Indication: INSOMNIA
     Dosage: .25 MG, QD
     Route: 048
     Dates: start: 20050101
  8. FERROMIA [Concomitant]
     Indication: ANAEMIA
     Dosage: 50 MG, QD
     Route: 048
     Dates: start: 20050821, end: 20050824
  9. URSO 250 [Concomitant]
     Indication: HEPATIC FUNCTION ABNORMAL
     Dosage: 150 MG, QD
     Dates: start: 20051007, end: 20051013
  10. TATHION [Concomitant]
     Indication: HEPATIC FUNCTION ABNORMAL
     Dosage: 300 MG, QD
     Route: 048
     Dates: start: 20051007, end: 20051013
  11. NORVASC [Concomitant]
     Dosage: 2,5 MG, QD
     Route: 048
     Dates: start: 20050101

REACTIONS (5)
  - ANTI-INSULIN ANTIBODY POSITIVE [None]
  - DIABETIC KETOACIDOSIS [None]
  - INJECTION SITE ERYTHEMA [None]
  - INJECTION SITE PRURITUS [None]
  - SKIN TEST POSITIVE [None]
